FAERS Safety Report 17499157 (Version 2)
Quarter: 2020Q1

REPORT INFORMATION
  Report Type: Spontaneous
  Country: HR (occurrence: HR)
  Receive Date: 20200305
  Receipt Date: 20200309
  Transmission Date: 20200409
  Serious: Yes (Other)
  Sender: FDA-Public Use
  Company Number: HR-ROCHE-2558292

PATIENT
  Age: 48 Year
  Sex: Female

DRUGS (3)
  1. AMOXICILLIN;CLAVULANATE POTASSIUM [Concomitant]
     Active Substance: AMOXICILLIN\CLAVULANATE POTASSIUM
     Route: 065
     Dates: start: 201912
  2. DECORTIN [Concomitant]
     Active Substance: PREDNISONE
     Dosage: FOR 2-3 DAYS
     Route: 065
  3. TECENTRIQ [Suspect]
     Active Substance: ATEZOLIZUMAB
     Indication: TRANSITIONAL CELL CARCINOMA
     Route: 042
     Dates: start: 20191219, end: 20200113

REACTIONS (4)
  - Toxic epidermal necrolysis [Recovering/Resolving]
  - General physical health deterioration [Unknown]
  - Rash [Not Recovered/Not Resolved]
  - Ileus [Unknown]

NARRATIVE: CASE EVENT DATE: 20191226
